FAERS Safety Report 12826819 (Version 1)
Quarter: 2016Q4

REPORT INFORMATION
  Report Type: Spontaneous
  Country: US (occurrence: US)
  Receive Date: 20161007
  Receipt Date: 20161007
  Transmission Date: 20170207
  Serious: No
  Sender: FDA-Public Use
  Company Number: US-WATSON-2015-19498

PATIENT
  Age: 59 Year
  Sex: Female

DRUGS (2)
  1. NORCO [Concomitant]
     Active Substance: ACETAMINOPHEN\HYDROCODONE BITARTRATE
     Indication: PRODUCT USED FOR UNKNOWN INDICATION
     Dosage: 2 DF, DAILY
     Route: 065
  2. FENTANYL-75 (WATSON LABORATORIES) [Suspect]
     Active Substance: FENTANYL
     Indication: BACK PAIN
     Dosage: 75 MCG, CHANGE PATCH EVERY 48 HOURS
     Route: 062

REACTIONS (3)
  - Withdrawal syndrome [Not Recovered/Not Resolved]
  - Pyrexia [Not Recovered/Not Resolved]
  - Diarrhoea [Not Recovered/Not Resolved]

NARRATIVE: CASE EVENT DATE: 201509
